FAERS Safety Report 17564553 (Version 1)
Quarter: 2020Q1

REPORT INFORMATION
  Report Type: Spontaneous
  Country: FR (occurrence: FR)
  Receive Date: 20200320
  Receipt Date: 20200320
  Transmission Date: 20200409
  Serious: Yes (Hospitalization, Other)
  Sender: FDA-Public Use
  Company Number: FR-AUROBINDO-AUR-APL-2020-013670

PATIENT
  Age: 34 Year
  Sex: Male
  Weight: 79 kg

DRUGS (2)
  1. LEVETIRACETAM ARROW [Suspect]
     Active Substance: LEVETIRACETAM
     Indication: EPILEPSY
     Dosage: 3 GRAM, ONCE A DAY
     Route: 048
     Dates: start: 20200208
  2. PROPOFOL. [Suspect]
     Active Substance: PROPOFOL
     Indication: SEDATION
     Dosage: 500 MILLIGRAM, EVERY HOUR
     Route: 041
     Dates: start: 20200208, end: 20200215

REACTIONS (3)
  - Prothrombin time shortened [Recovered/Resolved]
  - Hepatocellular injury [Recovering/Resolving]
  - Blood alkaline phosphatase increased [Recovered/Resolved]

NARRATIVE: CASE EVENT DATE: 20200212
